FAERS Safety Report 5275128-7 (Version None)
Quarter: 2007Q1

REPORT INFORMATION
  Report Type: 
  Country: None (occurrence: None)
  Receive Date: 20070326
  Receipt Date: 20070320
  Transmission Date: 20070707
  Serious: Yes (Death, Other)
  Sender: FDA-Public Use
  Company Number: PHEH2007US03319

PATIENT
  Age: 66 Year
  Sex: Male
  Weight: 85.26 kg

DRUGS (6)
  1. ZOMETA [Suspect]
     Indication: METASTASES TO BONE
     Dosage: 4 MG, QMO
     Route: 042
     Dates: start: 20060803, end: 20070125
  2. CARBOPLATIN [Concomitant]
     Indication: LUNG NEOPLASM MALIGNANT
     Dosage: 8 CYCLES
  3. TAXOL [Concomitant]
     Indication: LUNG NEOPLASM MALIGNANT
     Dosage: 8 CYCLES
  4. AVASTIN [Concomitant]
     Indication: LUNG NEOPLASM MALIGNANT
     Dosage: 8 CYCLES
  5. GEMZAR [Concomitant]
     Indication: LUNG NEOPLASM MALIGNANT
     Dosage: UNK, QW
  6. TARCEVA [Concomitant]
     Indication: LUNG NEOPLASM MALIGNANT
     Dosage: UNK, QW

REACTIONS (3)
  - BONE DEBRIDEMENT [None]
  - DEATH [None]
  - OSTEONECROSIS [None]
